FAERS Safety Report 9648604 (Version 1)
Quarter: 2013Q4

REPORT INFORMATION
  Report Type: Spontaneous
  Country: US (occurrence: None)
  Receive Date: 20131025
  Receipt Date: 20131025
  Transmission Date: 20140711
  Serious: No
  Sender: FDA-Public Use
  Company Number: None

PATIENT
  Age: 66 Year
  Sex: Female
  Weight: 80.74 kg

DRUGS (16)
  1. CYMBALTA LILLY USA, LLC [Suspect]
     Indication: FIBROMYALGIA
     Dosage: 30 MG + 20 MG CHANGED SEE LIST?ONCE DAILY
     Route: 048
  2. CYMBALTA LILLY USA, LLC [Suspect]
     Indication: ARTHRITIS
     Dosage: 30 MG + 20 MG CHANGED SEE LIST?ONCE DAILY
     Route: 048
  3. CYMBALTA LILLY USA, LLC [Suspect]
     Indication: BACK PAIN
     Dosage: 30 MG + 20 MG CHANGED SEE LIST?ONCE DAILY
     Route: 048
  4. CYMBALTA LILLY USA, LLC [Suspect]
     Indication: PAIN
     Dosage: 30 MG + 20 MG CHANGED SEE LIST?ONCE DAILY
     Route: 048
  5. LISINOPRIL [Concomitant]
  6. VERAPAMIL [Concomitant]
  7. HCTZ [Concomitant]
  8. POTASSIUM ER [Concomitant]
  9. LEVOTHYROXINE [Concomitant]
  10. DIVALPROEX SOD DR [Concomitant]
  11. ACYCLOVIR [Concomitant]
  12. VITAMIN D-3 [Concomitant]
  13. MULTI VITAMIN [Concomitant]
  14. FISH OIL (OMEGA 3) [Concomitant]
  15. CALCIUM [Concomitant]
  16. MAGNESIUM [Concomitant]

REACTIONS (3)
  - Hypoaesthesia [None]
  - Hypoaesthesia [None]
  - Dizziness [None]
